FAERS Safety Report 8192790-X (Version None)
Quarter: 2012Q1

REPORT INFORMATION
  Report Type: 
  Country: None (occurrence: None)
  Receive Date: 20120308
  Receipt Date: 20120301
  Transmission Date: 20120608
  Serious: Yes (Other)
  Sender: FDA-Public Use
  Company Number: US-PFIZER INC-2012055390

PATIENT
  Age: 5 Year

DRUGS (1)
  1. ZITHROMAX [Suspect]
     Indication: MYCOPLASMA INFECTION
     Dosage: UNK

REACTIONS (2)
  - DRUG INEFFECTIVE [None]
  - URTICARIA [None]
